FAERS Safety Report 5028177-8 (Version None)
Quarter: 2006Q2

REPORT INFORMATION
  Report Type: 
  Country: None (occurrence: None)
  Receive Date: 20060613
  Receipt Date: 20060602
  Transmission Date: 20061013
  Serious: Yes (Death, Hospitalization)
  Sender: FDA-Public Use
  Company Number: 2006069529

PATIENT
  Age: 56 Year
  Sex: Male

DRUGS (3)
  1. BEXTRA [Suspect]
     Indication: ARTHRITIS
     Dosage: 20 MG (20 MG, 1 IN 1 D)
     Dates: start: 20021001, end: 20040331
  2. BEXTRA [Suspect]
     Indication: BACK INJURY
     Dosage: 20 MG (20 MG, 1 IN 1 D)
     Dates: start: 20021001, end: 20040331
  3. CELEBREX [Suspect]
     Indication: BACK INJURY
     Dosage: 1 IN 1 D
     Dates: start: 20010101

REACTIONS (4)
  - ACUTE MYOCARDIAL INFARCTION [None]
  - ARTERIOSCLEROSIS [None]
  - BLOOD CHOLESTEROL INCREASED [None]
  - CARDIAC DISORDER [None]
